APPROVED DRUG PRODUCT: ZYVOX
Active Ingredient: LINEZOLID
Strength: 200MG/100ML (2MG/ML)
Dosage Form/Route: SOLUTION;INTRAVENOUS
Application: N021131 | Product #001 | TE Code: AP
Applicant: PFIZER INC
Approved: Apr 18, 2000 | RLD: Yes | RS: No | Type: RX